FAERS Safety Report 11069208 (Version 10)
Quarter: 2017Q3

REPORT INFORMATION
  Report Type: Spontaneous
  Country: CA (occurrence: CA)
  Receive Date: 20150427
  Receipt Date: 20170718
  Transmission Date: 20171127
  Serious: Yes (Hospitalization, Other)
  Sender: FDA-Public Use
  Company Number: CA-GLAXOSMITHKLINE INC.-A1060885A

PATIENT
  Age: 40 Year
  Sex: Female
  Weight: 109.4 kg

DRUGS (29)
  1. PREDNISONE. [Concomitant]
     Active Substance: PREDNISONE
     Indication: PRODUCT USED FOR UNKNOWN INDICATION
     Dosage: 40 MG, 1D
  2. BENLYSTA [Suspect]
     Active Substance: BELIMUMAB
     Dosage: UNK
     Dates: start: 20140123
  3. BENLYSTA [Suspect]
     Active Substance: BELIMUMAB
     Dosage: 1000 MG, Q4 WEEKS
  4. BENLYSTA [Suspect]
     Active Substance: BELIMUMAB
     Dosage: UNK
  5. NORTRIPTYLINE [Concomitant]
     Active Substance: NORTRIPTYLINE
     Dosage: 20 MG, QD HS (EVERY NIGHT)
     Route: 048
  6. BENLYSTA [Suspect]
     Active Substance: BELIMUMAB
     Dosage: UNK
     Dates: start: 20140123
  7. CELLCEPT [Concomitant]
     Active Substance: MYCOPHENOLATE MOFETIL\MYCOPHENOLATE MOFETIL HYDROCHLORIDE
     Indication: PRODUCT USED FOR UNKNOWN INDICATION
     Dosage: 500 MG, BID
     Route: 048
  8. HYDROXYCHLOROQUINE [Concomitant]
     Active Substance: HYDROXYCHLOROQUINE
     Indication: PRODUCT USED FOR UNKNOWN INDICATION
     Dosage: UNK, UNK
  9. PLAQUENIL [Concomitant]
     Active Substance: HYDROXYCHLOROQUINE SULFATE
     Dosage: UNK, BID
     Route: 048
  10. CALCIUM [Concomitant]
     Active Substance: CALCIUM
     Route: 048
  11. BENLYSTA [Suspect]
     Active Substance: BELIMUMAB
     Dosage: 1000 MG, UNK
  12. BENLYSTA [Suspect]
     Active Substance: BELIMUMAB
     Dosage: 100 UNK, UNK
  13. PREDNISONE. [Concomitant]
     Active Substance: PREDNISONE
     Dosage: 10 MG, UNK
     Route: 048
     Dates: start: 20150420
  14. DIPHENHYDRAMINE. [Concomitant]
     Active Substance: DIPHENHYDRAMINE
     Indication: PRODUCT USED FOR UNKNOWN INDICATION
     Dosage: 50 MG, UNK
     Route: 048
  15. FENTANYL. [Concomitant]
     Active Substance: FENTANYL
     Dosage: 75 UG, Q 2 DAYS
  16. MARIJUANA [Concomitant]
     Active Substance: CANNABIS SATIVA SUBSP. INDICA TOP
     Dosage: UNK, PRN - OIL AND VAPE USAGE
  17. PREDNISONE. [Concomitant]
     Active Substance: PREDNISONE
     Dosage: 4 MG, QD
     Route: 048
  18. ETIDRONATE [Concomitant]
     Active Substance: ETIDRONATE DISODIUM
     Route: 048
  19. BENLYSTA [Suspect]
     Active Substance: BELIMUMAB
     Indication: SYSTEMIC LUPUS ERYTHEMATOSUS
     Dosage: AT WEEKS 0,2,4 THEN EVERY FOUR WEEKS
     Route: 042
     Dates: start: 20140123
  20. PREDNISONE. [Concomitant]
     Active Substance: PREDNISONE
     Dosage: 25 MG, QD - WEANING
     Route: 048
  21. FUROSEMIDE. [Concomitant]
     Active Substance: FUROSEMIDE
     Dosage: 80 MG, QD
     Route: 048
  22. SULFATRIM [Concomitant]
     Active Substance: SULFAMETHOXAZOLE\TRIMETHOPRIM
     Route: 048
  23. CYMBALTA [Concomitant]
     Active Substance: DULOXETINE HYDROCHLORIDE
     Dosage: 90 MG, QD IN AM (IN MORNING)
     Route: 048
  24. BENLYSTA [Suspect]
     Active Substance: BELIMUMAB
     Dosage: 100 MG, UNK
  25. BENLYSTA [Suspect]
     Active Substance: BELIMUMAB
     Dosage: 1000 MG, UNK
     Route: 042
     Dates: start: 201402
  26. CELLCEPT [Concomitant]
     Active Substance: MYCOPHENOLATE MOFETIL\MYCOPHENOLATE MOFETIL HYDROCHLORIDE
     Dosage: UNK
     Dates: start: 20150420
  27. HYDROXYCHLOROQUINE [Concomitant]
     Active Substance: HYDROXYCHLOROQUINE
     Dosage: UNK
     Dates: start: 20150420
  28. PANTOLOC [Concomitant]
     Active Substance: PANTOPRAZOLE SODIUM
     Route: 048
  29. TRAZODONE [Concomitant]
     Active Substance: TRAZODONE HYDROCHLORIDE

REACTIONS (36)
  - Abdominal pain [Unknown]
  - Dyspnoea [Recovered/Resolved]
  - Infusion site pruritus [Recovered/Resolved]
  - Pneumonia [Recovered/Resolved]
  - Peripheral swelling [Unknown]
  - Breath sounds abnormal [Unknown]
  - Infusion site erythema [Recovered/Resolved]
  - Joint swelling [Unknown]
  - Pain [Unknown]
  - Oropharyngeal pain [Not Recovered/Not Resolved]
  - Rash papular [Unknown]
  - Hypoaesthesia [Unknown]
  - Chest pain [Recovered/Resolved]
  - Infusion site swelling [Recovered/Resolved]
  - Burning sensation [Unknown]
  - Pericarditis [Unknown]
  - Pyrexia [Unknown]
  - Drug effect decreased [Not Recovered/Not Resolved]
  - Rash vesicular [Unknown]
  - Nasal congestion [Not Recovered/Not Resolved]
  - Urticaria [Unknown]
  - Depressed mood [Unknown]
  - Sepsis [Recovered/Resolved]
  - Malaise [Recovered/Resolved]
  - Fatigue [Unknown]
  - Rash erythematous [Unknown]
  - Systemic lupus erythematosus [Unknown]
  - Catheterisation venous [Unknown]
  - Nausea [Recovered/Resolved]
  - Mobility decreased [Unknown]
  - Arthralgia [Not Recovered/Not Resolved]
  - Headache [Recovering/Resolving]
  - Costochondritis [Recovered/Resolved]
  - Surgery [Unknown]
  - Adverse event [Unknown]
  - Rash [Unknown]

NARRATIVE: CASE EVENT DATE: 20140319
